FAERS Safety Report 9522317 (Version 1)
Quarter: 2013Q3

REPORT INFORMATION
  Report Type: Spontaneous
  Country: US (occurrence: None)
  Receive Date: 20130911
  Receipt Date: 20130911
  Transmission Date: 20140515
  Serious: No
  Sender: FDA-Public Use
  Company Number: US-IGSA-IG1378

PATIENT
  Sex: Female

DRUGS (1)
  1. FLEBOGAMMA DIF [Suspect]
     Indication: PRODUCT USED FOR UNKNOWN INDICATION
     Route: 042

REACTIONS (2)
  - Headache [None]
  - Migraine [None]
